FAERS Safety Report 17122790 (Version 1)
Quarter: 2019Q4

REPORT INFORMATION
  Report Type: Spontaneous
  Country: SE (occurrence: SE)
  Receive Date: 20191206
  Receipt Date: 20191206
  Transmission Date: 20200122
  Serious: Yes (Hospitalization)
  Sender: FDA-Public Use
  Company Number: SE-PFIZER INC-2019523613

PATIENT
  Sex: Female

DRUGS (7)
  1. PARAFLEX [Suspect]
     Active Substance: CHLORZOXAZONE
     Dosage: 500 MG, (AT 22 :00)
     Route: 048
     Dates: start: 20190728, end: 20190728
  2. PROPAVAN [Suspect]
     Active Substance: PROPIOMAZINE
     Dosage: 50 MG, (22 :00)
     Route: 048
     Dates: start: 20190728, end: 20190728
  3. RELPAX [Suspect]
     Active Substance: ELETRIPTAN HYDROBROMIDE
     Dosage: 40 MG, 1X/DAY (AT MIDNIGHT)
     Route: 048
     Dates: start: 20190728, end: 20190728
  4. ALVEDON [Suspect]
     Active Substance: ACETAMINOPHEN
     Dosage: 1 G, UNK (AT MIDNIGHT)
     Route: 048
     Dates: start: 20190728, end: 20190728
  5. LERGIGAN [PROMETHAZINE HYDROCHLORIDE] [Suspect]
     Active Substance: PROMETHAZINE HYDROCHLORIDE
     Dosage: 125 MG, DAILY (2X25 MG 19:00 AND 3X25 MG 23:00)
     Route: 048
     Dates: start: 20190728, end: 20190728
  6. ALIMEMAZINE [Suspect]
     Active Substance: TRIMEPRAZINE
     Dosage: 60 MG, (3X20 MG AT 21:00)
     Route: 048
     Dates: start: 20190728, end: 20190728
  7. ATARAX [Suspect]
     Active Substance: HYDROXYZINE HYDROCHLORIDE
     Dosage: 50 MG, (AT 22 :00)
     Route: 048
     Dates: start: 20190728, end: 20190728

REACTIONS (5)
  - Pollakiuria [Unknown]
  - Eye disorder [Unknown]
  - Headache [Unknown]
  - Accidental overdose [Unknown]
  - Hypoaesthesia [Unknown]

NARRATIVE: CASE EVENT DATE: 201907
